FAERS Safety Report 10501621 (Version 2)
Quarter: 2014Q4

REPORT INFORMATION
  Report Type: Report from Study
  Country: IN (occurrence: IN)
  Receive Date: 20141007
  Receipt Date: 20141007
  Transmission Date: 20150528
  Serious: Yes (Death, Other)
  Sender: FDA-Public Use
  Company Number: PHHY2014IN097704

PATIENT
  Age: 92 Year
  Sex: Male
  Weight: 63 kg

DRUGS (3)
  1. QUETIPIN [Concomitant]
     Indication: SCHIZOPHRENIA
     Dosage: UNK UKN, UNK
     Route: 048
     Dates: start: 20140524
  2. EXELON PATCH [Suspect]
     Active Substance: RIVASTIGMINE
     Indication: DEMENTIA ALZHEIMER^S TYPE
     Dosage: 4.6 MG (5 CM 2) DAILY
     Route: 062
     Dates: start: 20140524
  3. SYNDOPA [Concomitant]
     Indication: PARKINSON^S DISEASE
     Dosage: UNK UKN, UNK
     Route: 048
     Dates: start: 20140524

REACTIONS (4)
  - Dyspnoea [Fatal]
  - Anxiety [Not Recovered/Not Resolved]
  - Decreased appetite [Not Recovered/Not Resolved]
  - Hallucination [Not Recovered/Not Resolved]
